FAERS Safety Report 11147085 (Version 4)
Quarter: 2019Q1

REPORT INFORMATION
  Report Type: Report from Study
  Country: US (occurrence: US)
  Receive Date: 20150528
  Receipt Date: 20190128
  Transmission Date: 20190417
  Serious: Yes (Other)
  Sender: FDA-Public Use
  Company Number: US-SA-2015SA072833

PATIENT
  Age: 69 Year
  Sex: Female

DRUGS (3)
  1. INSULIN GLARGINE [Suspect]
     Active Substance: INSULIN GLARGINE
     Dosage: 80 U, QD
     Route: 058
  2. INSULIN GLARGINE [Suspect]
     Active Substance: INSULIN GLARGINE
     Indication: DIABETES MELLITUS
     Dosage: UNK UNK,QD
     Route: 058
     Dates: start: 20070101
  3. INSULIN GLARGINE [Suspect]
     Active Substance: INSULIN GLARGINE
     Dosage: 80 U, QD
     Route: 058
     Dates: start: 20070306, end: 20170217

REACTIONS (11)
  - Systemic lupus erythematosus [Unknown]
  - Pruritus [Not Recovered/Not Resolved]
  - Depression [Unknown]
  - Gastrooesophageal reflux disease [Unknown]
  - Loss of personal independence in daily activities [Unknown]
  - Myocardial infarction [Unknown]
  - Intentional product misuse [Unknown]
  - Blood glucose abnormal [Unknown]
  - Cardiac failure congestive [Recovered/Resolved]
  - Intervertebral disc disorder [Unknown]
  - Irritable bowel syndrome [Unknown]
